FAERS Safety Report 7260213-0 (Version None)
Quarter: 2011Q1

REPORT INFORMATION
  Report Type: 
  Country: None (occurrence: None)
  Receive Date: 20110130
  Receipt Date: 20101029
  Transmission Date: 20110831
  Serious: No
  Sender: FDA-Public Use
  Company Number: US-ABBOTT-10P-163-0676919-00

PATIENT
  Sex: Female
  Weight: 52.664 kg

DRUGS (12)
  1. REIRON [Concomitant]
     Indication: IRON DEFICIENCY
     Route: 048
     Dates: start: 20090101
  2. RECLAST [Concomitant]
     Indication: OSTEOPOROSIS
     Route: 042
  3. HUMIRA [Suspect]
     Indication: RHEUMATOID ARTHRITIS
     Route: 058
     Dates: start: 20100425, end: 20100606
  4. HUMIRA [Suspect]
     Route: 058
     Dates: start: 20100725, end: 20100725
  5. LANSOPRAZOLE [Concomitant]
     Indication: GASTROOESOPHAGEAL REFLUX DISEASE
     Route: 048
  6. FISH OIL [Concomitant]
     Indication: SUPPLEMENTATION THERAPY
     Route: 048
  7. PREDNISONE [Concomitant]
     Indication: RHEUMATOID ARTHRITIS
     Dosage: PATIENT IS SURE OF STRENGTH
     Route: 048
  8. LISINOPRIL AND HYDROCHLOROTHIAZIDE [Concomitant]
     Indication: HYPERTENSION
     Dosage: 10/12.5
     Route: 048
  9. HUMIRA [Suspect]
     Route: 058
     Dates: start: 20100826
  10. CATRATE W/ D [Concomitant]
     Indication: SUPPLEMENTATION THERAPY
     Route: 048
  11. OCU-VITE 50 PLUS [Concomitant]
     Indication: SUPPLEMENTATION THERAPY
     Route: 048
  12. BION DRY EYE DROPS [Concomitant]
     Indication: DRY EYE
     Route: 047

REACTIONS (10)
  - TOOTH ABSCESS [None]
  - ARTHRALGIA [None]
  - OEDEMA PERIPHERAL [None]
  - HYPOAESTHESIA [None]
  - MUSCULOSKELETAL STIFFNESS [None]
  - HEADACHE [None]
  - DRUG INEFFECTIVE [None]
  - PAIN IN EXTREMITY [None]
  - WOUND INFECTION [None]
  - BACK PAIN [None]
